FAERS Safety Report 4766595-3 (Version None)
Quarter: 2005Q3

REPORT INFORMATION
  Report Type: 
  Country: None (occurrence: None)
  Receive Date: 20050908
  Receipt Date: 20050830
  Transmission Date: 20060218
  Serious: Yes (Other)
  Sender: FDA-Public Use
  Company Number: S05-USA-04148-01

PATIENT
  Age: 25 Year
  Sex: Female

DRUGS (3)
  1. LEXAPRO [Suspect]
     Indication: DEPRESSION
     Dosage: 10 MG QD PO
     Route: 048
     Dates: start: 20050801, end: 20050801
  2. ZONEGRAN [Concomitant]
  3. SEROQUEL [Concomitant]

REACTIONS (1)
  - CONVULSION [None]
